FAERS Safety Report 8392198-8 (Version None)
Quarter: 2012Q2

REPORT INFORMATION
  Report Type: 
  Country: None (occurrence: None)
  Receive Date: 20120529
  Receipt Date: 20120515
  Transmission Date: 20120825
  Serious: Yes (Hospitalization)
  Sender: FDA-Public Use
  Company Number: GB-ROCHE-1069610

PATIENT
  Sex: Female
  Weight: 58 kg

DRUGS (3)
  1. MABTHERA [Suspect]
     Indication: RHEUMATOID ARTHRITIS
     Dosage: LAST DOSE PRIOR TO SAE:08/NOV/2011
     Route: 065
     Dates: start: 20110317
  2. STEROIDS (UNK INGREDIENTS) [Concomitant]
  3. METHOTREXATE [Concomitant]
     Route: 048

REACTIONS (3)
  - PYREXIA [None]
  - NIGHT SWEATS [None]
  - THROMBOPHLEBITIS [None]
